FAERS Safety Report 9445382 (Version 2)
Quarter: 2013Q4

REPORT INFORMATION
  Report Type: Spontaneous
  Country: US (occurrence: US)
  Receive Date: 20130807
  Receipt Date: 20131030
  Transmission Date: 20140711
  Serious: Yes (Hospitalization)
  Sender: FDA-Public Use
  Company Number: US-JNJFOC-20130717749

PATIENT
  Age: 57 Year
  Sex: Male

DRUGS (7)
  1. XARELTO [Suspect]
     Indication: DEEP VEIN THROMBOSIS
     Route: 048
     Dates: start: 201307, end: 201307
  2. COUMADIN [Concomitant]
     Route: 048
  3. RITALIN [Concomitant]
     Route: 048
  4. TESSALON [Concomitant]
     Route: 048
  5. VENTOLIN HFA [Concomitant]
     Route: 048
  6. WELLBUTRIN [Concomitant]
     Route: 048
  7. ACETAMINOPHEN-CODEINE [Concomitant]
     Route: 065

REACTIONS (5)
  - Asthma [Unknown]
  - Pulmonary embolism [Unknown]
  - Sleep apnoea syndrome [Unknown]
  - Obesity [Unknown]
  - Cough [Unknown]
